FAERS Safety Report 5265527-1 (Version None)
Quarter: 2007Q1

REPORT INFORMATION
  Report Type: 
  Country: None (occurrence: None)
  Receive Date: 20070314
  Receipt Date: 20070302
  Transmission Date: 20070707
  Serious: Yes (Hospitalization)
  Sender: FDA-Public Use
  Company Number: FR-PFIZER INC-2007017019

PATIENT
  Age: 84 Year
  Sex: Female

DRUGS (7)
  1. TRIFLUCAN [Suspect]
     Dosage: DAILY DOSE:200MG
     Route: 048
     Dates: start: 20061214, end: 20061223
  2. TRIFLUCAN [Suspect]
     Dosage: DAILY DOSE:50MG
     Dates: start: 20061224, end: 20061228
  3. ENOXAPARIN SODIUM [Suspect]
     Dosage: TEXT:40MG/0.4ML; 40MG/0.4ML-FREQ:EVERY DAY
     Route: 058
  4. ESOMEPRAZOLE MAGNESIUM [Suspect]
     Dosage: DAILY DOSE:40MG-FREQ:EVERY DAY
     Route: 048
     Dates: start: 20061130, end: 20061220
  5. HEPARIN [Suspect]
     Dosage: FREQ:EVERY DAY
     Route: 058
     Dates: start: 20061130, end: 20061205
  6. COLCHICINE/OPIUM/TIEMONIUM [Suspect]
     Dosage: TEXT:1 DF-FREQ:EVERY DAY
     Route: 048
     Dates: start: 20061207, end: 20061221
  7. PANTOPRAZOLE SODIUM [Suspect]
     Route: 048
     Dates: start: 20061221, end: 20061230

REACTIONS (2)
  - DEEP VEIN THROMBOSIS [None]
  - THROMBOCYTOPENIA [None]
